FAERS Safety Report 5205726-8 (Version None)
Quarter: 2007Q1

REPORT INFORMATION
  Report Type: 
  Country: None (occurrence: None)
  Receive Date: 20070105
  Receipt Date: 20070105
  Transmission Date: 20070707
  Serious: Yes (Life-Threatening, Hospitalization)
  Sender: FDA-Public Use
  Company Number: None

PATIENT
  Sex: Male
  Weight: 82.7 kg

DRUGS (17)
  1. COUMADIN [Suspect]
     Indication: ATRIAL FIBRILLATION
     Dosage: 3.75MG QPM PO VARYING DOSES
     Route: 048
     Dates: start: 20050601
  2. LORAZEPAM [Concomitant]
  3. COMBIVENT [Concomitant]
  4. DOCUSATE [Concomitant]
  5. DEXTRAN/METHYL CELLULOSE [Concomitant]
  6. FERROUS SULFATE TAB [Concomitant]
  7. IPRATROPIUM BROMIDE [Concomitant]
  8. LISINOPRIL [Concomitant]
  9. LORATADINE [Concomitant]
  10. OMEPRAZOLE [Concomitant]
  11. OXYBUTYNIN [Concomitant]
  12. TAMSULOSIN HCL [Concomitant]
  13. VERAPAMIL [Concomitant]
  14. MOMETASONE FUROATE [Concomitant]
  15. CODEINE/APAP [Concomitant]
  16. SIMETHICONE [Concomitant]
  17. WARFARIN SODIUM [Concomitant]

REACTIONS (10)
  - ACUTE ABDOMEN [None]
  - COLITIS [None]
  - CONVULSION [None]
  - GENERAL PHYSICAL HEALTH DETERIORATION [None]
  - HYPOTENSION [None]
  - INTESTINAL ISCHAEMIA [None]
  - LOWER GASTROINTESTINAL HAEMORRHAGE [None]
  - RECTAL HAEMORRHAGE [None]
  - RENAL FAILURE [None]
  - SEPSIS [None]
